FAERS Safety Report 9139981 (Version 1)
Quarter: 2013Q1

REPORT INFORMATION
  Report Type: Spontaneous
  Country: CO (occurrence: CO)
  Receive Date: 20130305
  Receipt Date: 20130305
  Transmission Date: 20140127
  Serious: Yes (Other)
  Sender: FDA-Public Use
  Company Number: CO-PFIZER INC-2013065147

PATIENT
  Age: 75 Year
  Sex: Female

DRUGS (1)
  1. FRAGMIN [Suspect]
     Indication: EMBOLISM
     Dosage: 5000 IU, 2X/DAY
     Route: 030
     Dates: start: 20120919

REACTIONS (6)
  - Renal cell carcinoma [Unknown]
  - Pulmonary embolism [Unknown]
  - Drug ineffective [Unknown]
  - Blood creatine abnormal [Unknown]
  - Glomerular filtration rate abnormal [Unknown]
  - Incorrect route of drug administration [Unknown]
